FAERS Safety Report 21996935 (Version 2)
Quarter: 2023Q1

REPORT INFORMATION
  Report Type: Report from Study
  Country: CL (occurrence: CL)
  Receive Date: 20230215
  Receipt Date: 20230228
  Transmission Date: 20230417
  Serious: Yes (Other)
  Sender: FDA-Public Use
  Company Number: CL-BIOGEN-2023BI01187153

PATIENT
  Sex: Female

DRUGS (6)
  1. AVONEX PEN [Suspect]
     Active Substance: INTERFERON BETA-1A
     Indication: Multiple sclerosis
     Route: 050
     Dates: start: 20170218
  2. AVONEX PEN [Suspect]
     Active Substance: INTERFERON BETA-1A
  3. AVONEX PEN [Suspect]
     Active Substance: INTERFERON BETA-1A
  4. AVONEX PEN [Suspect]
     Active Substance: INTERFERON BETA-1A
  5. IBUPROFEN [Concomitant]
     Active Substance: IBUPROFEN
     Indication: Premedication
     Route: 050
  6. NAPROXEN [Concomitant]
     Active Substance: NAPROXEN
     Indication: Product used for unknown indication
     Route: 050

REACTIONS (8)
  - Epilepsy [Recovered/Resolved]
  - Multiple sclerosis [Not Recovered/Not Resolved]
  - Feeling cold [Recovered/Resolved]
  - Bronchitis [Recovered/Resolved]
  - Inappropriate schedule of product administration [Recovered/Resolved]
  - Injection site pain [Not Recovered/Not Resolved]
  - Pain [Unknown]
  - Affect lability [Unknown]

NARRATIVE: CASE EVENT DATE: 20200101
